FAERS Safety Report 10273098 (Version 1)
Quarter: 2014Q2

REPORT INFORMATION
  Report Type: Spontaneous
  Country: US (occurrence: None)
  Receive Date: 20140630
  Receipt Date: 20140630
  Transmission Date: 20141212
  Serious: Yes (Disabling, Other)
  Sender: FDA-Public Use
  Company Number: None

PATIENT
  Age: 33 Year
  Sex: Male
  Weight: 72.58 kg

DRUGS (1)
  1. GENE THERAPY VECTOR [Suspect]

REACTIONS (1)
  - Accidental exposure to product [None]
